FAERS Safety Report 5293564-X (Version None)
Quarter: 2007Q2

REPORT INFORMATION
  Report Type: 
  Country: None (occurrence: None)
  Receive Date: 20070411
  Receipt Date: 20070330
  Transmission Date: 20071010
  Serious: Yes (Other)
  Sender: FDA-Public Use
  Company Number: GBWYE662414FEB07

PATIENT
  Age: 30 Year
  Sex: Male
  Weight: 70 kg

DRUGS (5)
  1. EFFEXOR XR [Suspect]
     Indication: ANTIDEPRESSANT THERAPY
     Route: 048
  2. EFFEXOR XR [Interacting]
     Dates: start: 20070101
  3. LITHIUM CARBONATE [Interacting]
     Dosage: 400 MG (UNKNOWN FREQUENCY)
  4. LITHIUM CARBONATE [Interacting]
     Dosage: 600MG (UNKNOWN FREQUENCY)
  5. OLANZAPINE [Interacting]
     Indication: SLEEP DISORDER
     Dates: start: 20061201

REACTIONS (6)
  - DRUG INTERACTION [None]
  - DYSPHORIA [None]
  - HEADACHE [None]
  - MOOD ALTERED [None]
  - PSYCHIATRIC SYMPTOM [None]
  - SELF-INJURIOUS IDEATION [None]
